FAERS Safety Report 7605125-5 (Version None)
Quarter: 2011Q3

REPORT INFORMATION
  Report Type: 
  Country: None (occurrence: None)
  Receive Date: 20110713
  Receipt Date: 20110705
  Transmission Date: 20111222
  Serious: Yes (Life-Threatening, Hospitalization, Other)
  Sender: FDA-Public Use
  Company Number: GB-AMGEN-GBRSP2011034471

PATIENT
  Age: 63 Year
  Sex: Female
  Weight: 58.957 kg

DRUGS (7)
  1. ENBREL [Suspect]
     Indication: RHEUMATOID ARTHRITIS
     Dosage: 50 MG, WEEKLY
     Route: 058
     Dates: start: 20110222, end: 20110603
  2. METHOTREXATE SODIUM [Suspect]
     Indication: RHEUMATOID ARTHRITIS
     Dosage: 20 MG, WEEKLY
     Route: 048
     Dates: start: 20040624, end: 20110603
  3. DICLOFENAC [Concomitant]
     Dosage: UNK UNK, UNK
  4. CALCIUM CARBONATE [Concomitant]
     Dosage: UNK UNK, UNK
  5. FOLIC ACID [Concomitant]
     Dosage: UNK UNK, UNK
  6. LANSOPRAZOLE [Concomitant]
     Dosage: UNK UNK, UNK
  7. ACETAMINOPHEN AND CODEINE PHOSPHATE [Concomitant]
     Dosage: UNK UNK, UNK

REACTIONS (4)
  - PNEUMONITIS [None]
  - RESPIRATORY FAILURE [None]
  - BRONCHIECTASIS [None]
  - PULMONARY FIBROSIS [None]
